FAERS Safety Report 25998631 (Version 1)
Quarter: 2025Q4

REPORT INFORMATION
  Report Type: Spontaneous
  Country: US (occurrence: US)
  Receive Date: 20251105
  Receipt Date: 20251105
  Transmission Date: 20260117
  Serious: No
  Sender: GLENMARK
  Company Number: US-GLENMARK PHARMACEUTICALS-2025GMK097800

PATIENT

DRUGS (1)
  1. ESTRADIOL [Suspect]
     Active Substance: ESTRADIOL
     Indication: Product used for unknown indication
     Dosage: UNK
     Route: 067

REACTIONS (6)
  - Drug dose omission by device [Unknown]
  - Extra dose administered [Unknown]
  - Product quality issue [Unknown]
  - Device issue [Unknown]
  - Device colour issue [Unknown]
  - Device difficult to use [Unknown]
